FAERS Safety Report 7990100-1 (Version None)
Quarter: 2011Q4

REPORT INFORMATION
  Report Type: 
  Country: None (occurrence: None)
  Receive Date: 20111219
  Receipt Date: 20110906
  Transmission Date: 20120403
  Serious: No
  Sender: FDA-Public Use
  Company Number: US-ASTRAZENECA-2011SE53624

PATIENT
  Sex: Female

DRUGS (3)
  1. SIMAVASIN [Concomitant]
  2. CRESTOR [Suspect]
     Dosage: 4 TABLETS SO FAR IN 8 DAYS EVERY OTHER DAY
     Route: 048
  3. LIPITOR [Concomitant]

REACTIONS (4)
  - PAIN IN EXTREMITY [None]
  - NECK PAIN [None]
  - INAPPROPRIATE SCHEDULE OF DRUG ADMINISTRATION [None]
  - MUSCULOSKELETAL PAIN [None]
